FAERS Safety Report 9227408 (Version 4)
Quarter: 2013Q3

REPORT INFORMATION
  Report Type: Report from Study
  Country: CA (occurrence: CA)
  Receive Date: 20130412
  Receipt Date: 20130927
  Transmission Date: 20140515
  Serious: Yes (Death, Hospitalization, Other)
  Sender: FDA-Public Use
  Company Number: PHHY2012CA008221

PATIENT
  Sex: Male

DRUGS (1)
  1. SANDOSTATIN LAR [Suspect]
     Indication: RECTAL CANCER METASTATIC
     Dosage: 30 MG, ONCE A MONTH
     Route: 030
     Dates: start: 20110812, end: 20130527

REACTIONS (12)
  - Malignant neoplasm progression [Fatal]
  - Pneumonia [Unknown]
  - Brain neoplasm [Unknown]
  - Second primary malignancy [Unknown]
  - Brain oedema [Unknown]
  - Metastasis [Unknown]
  - Pain [Unknown]
  - Musculoskeletal pain [Unknown]
  - Vomiting [Unknown]
  - Dizziness [Unknown]
  - Fatigue [Unknown]
  - Asthenia [Unknown]
